FAERS Safety Report 24645880 (Version 1)
Quarter: 2024Q4

REPORT INFORMATION
  Report Type: Spontaneous
  Country: US (occurrence: US)
  Receive Date: 20241121
  Receipt Date: 20241121
  Transmission Date: 20250115
  Serious: Yes (Other)
  Sender: UCB
  Company Number: US-UCBSA-2024059778

PATIENT
  Age: 37 Year
  Sex: Female
  Weight: 70.839 kg

DRUGS (6)
  1. KEPPRA [Suspect]
     Active Substance: LEVETIRACETAM
     Indication: Seizure
     Dosage: 750 MILLIGRAM, 2X/DAY (BID)
     Route: 048
  2. NAYZILAM [Suspect]
     Active Substance: MIDAZOLAM
     Indication: Product used for unknown indication
  3. FLUOXETINE [Concomitant]
     Active Substance: FLUOXETINE HYDROCHLORIDE
     Indication: Product used for unknown indication
     Dosage: 10 MILLIGRAM, ONCE DAILY (QD)
     Route: 048
     Dates: start: 20240924
  4. PROPRANOLOL [Concomitant]
     Active Substance: PROPRANOLOL HYDROCHLORIDE
     Indication: Panic attack
     Dosage: 10 MILLIGRAM, AS NEEDED (PRN)
     Route: 048
     Dates: start: 20240924
  5. SERTRALINE [Concomitant]
     Active Substance: SERTRALINE HYDROCHLORIDE
     Indication: Product used for unknown indication
     Dosage: 100 MILLIGRAM, ONCE DAILY (QD)
     Route: 048
     Dates: start: 20240423
  6. VALTOCO [Concomitant]
     Active Substance: DIAZEPAM
     Indication: Product used for unknown indication
     Dosage: 20 MILLIGRAM, AS NEEDED (PRN)
     Route: 045
     Dates: start: 20241016

REACTIONS (24)
  - Seizure [Unknown]
  - Loss of consciousness [Unknown]
  - Cerebral disorder [Unknown]
  - Anger [Unknown]
  - Paranasal sinus discomfort [Unknown]
  - Palpitations [Unknown]
  - Weight increased [Unknown]
  - Fatigue [Unknown]
  - Eye irritation [Unknown]
  - Vision blurred [Unknown]
  - Sexual dysfunction [Unknown]
  - Menstrual disorder [Unknown]
  - Lymphadenopathy [Unknown]
  - Increased tendency to bruise [Unknown]
  - Neck pain [Unknown]
  - Muscle twitching [Unknown]
  - Vertigo [Unknown]
  - Dizziness [Unknown]
  - Depression [Unknown]
  - Poor quality sleep [Unknown]
  - Anxiety [Unknown]
  - Cough [Unknown]
  - Affective disorder [Unknown]
  - Balance disorder [Unknown]

NARRATIVE: CASE EVENT DATE: 20210922
